FAERS Safety Report 11822868 (Version 1)
Quarter: 2015Q4

REPORT INFORMATION
  Report Type: Spontaneous
  Country: US (occurrence: US)
  Receive Date: 20151210
  Receipt Date: 20151210
  Transmission Date: 20160305
  Serious: Yes (Hospitalization)
  Sender: FDA-Public Use
  Company Number: US-JNJFOC-20150506022

PATIENT
  Age: 70 Year
  Sex: Male

DRUGS (11)
  1. RANEXA [Concomitant]
     Active Substance: RANOLAZINE
  2. TIMOLOL. [Concomitant]
     Active Substance: TIMOLOL
  3. ASPIRIN. [Concomitant]
     Active Substance: ASPIRIN
  4. ZONISAMIDE. [Concomitant]
     Active Substance: ZONISAMIDE
  5. IMBRUVICA [Suspect]
     Active Substance: IBRUTINIB
     Indication: CHRONIC LYMPHOCYTIC LEUKAEMIA
     Route: 048
     Dates: start: 20140722, end: 20150420
  6. METOPROLOL [Concomitant]
     Active Substance: METOPROLOL
  7. ZIOPTAN [Concomitant]
     Active Substance: TAFLUPROST
  8. NORCO [Concomitant]
     Active Substance: ACETAMINOPHEN\HYDROCODONE BITARTRATE
  9. FLOMAX [Concomitant]
     Active Substance: TAMSULOSIN HYDROCHLORIDE
  10. SIMVASTATIN. [Concomitant]
     Active Substance: SIMVASTATIN
  11. NITROGLYCERIN. [Concomitant]
     Active Substance: NITROGLYCERIN

REACTIONS (1)
  - Herpes zoster [Recovering/Resolving]

NARRATIVE: CASE EVENT DATE: 201504
